FAERS Safety Report 10601587 (Version 1)
Quarter: 2014Q4

REPORT INFORMATION
  Report Type: Spontaneous
  Country: US (occurrence: None)
  Receive Date: 20141121
  Receipt Date: 20141121
  Transmission Date: 20150529
  Serious: No
  Sender: FDA-Public Use
  Company Number: None

PATIENT
  Age: 59 Year
  Sex: Female

DRUGS (1)
  1. HUMIRA [Suspect]
     Active Substance: ADALIMUMAB
     Indication: ILL-DEFINED DISORDER
     Dosage: Q 2 WEEKS
     Route: 058
     Dates: start: 20140825, end: 20141024

REACTIONS (2)
  - Urticaria [None]
  - No therapeutic response [None]

NARRATIVE: CASE EVENT DATE: 20141024
